FAERS Safety Report 18475137 (Version 13)
Quarter: 2023Q2

REPORT INFORMATION
  Report Type: Report from Study
  Country: CO (occurrence: CO)
  Receive Date: 20201106
  Receipt Date: 20230510
  Transmission Date: 20230721
  Serious: Yes (Hospitalization)
  Sender: FDA-Public Use
  Company Number: NVSC2020CO267492

PATIENT
  Age: 2 Year
  Sex: Female
  Weight: 18 kg

DRUGS (9)
  1. ELTROMBOPAG OLAMINE [Suspect]
     Active Substance: ELTROMBOPAG OLAMINE
     Indication: Immune thrombocytopenia
     Dosage: 25 MG, QD
     Route: 048
     Dates: start: 202007, end: 202008
  2. ELTROMBOPAG OLAMINE [Suspect]
     Active Substance: ELTROMBOPAG OLAMINE
     Dosage: 25 MG, QD (STOP DATE WAS 10 SEP)
     Route: 048
  3. ELTROMBOPAG OLAMINE [Suspect]
     Active Substance: ELTROMBOPAG OLAMINE
     Dosage: 25 MG, QD
     Route: 048
  4. ELTROMBOPAG OLAMINE [Suspect]
     Active Substance: ELTROMBOPAG OLAMINE
     Dosage: 25 MG, QD (DAILY EXCEPT  WEDNESDAY AND FRIDAY)
     Route: 048
  5. ELTROMBOPAG OLAMINE [Suspect]
     Active Substance: ELTROMBOPAG OLAMINE
     Dosage: UNK (NO LONGER TAKES IT ON WEDNESDAY, FRIDAY, OR SUNDAY)
     Route: 048
  6. ANEMIDOX [Concomitant]
     Indication: Anaemia
     Dosage: 2 DF, QD (8 MONTHS AGO)
     Route: 048
  7. PREDNISOLONE [Concomitant]
     Active Substance: PREDNISOLONE
     Indication: Immune thrombocytopenia
     Dosage: 5 MG, QD (8 MONTHS AGO)
     Route: 048
  8. PREDNISOLONE [Concomitant]
     Active Substance: PREDNISOLONE
     Dosage: 10 DF (FOR 3 DAYS)
     Route: 048
  9. PREDNISOLONE [Concomitant]
     Active Substance: PREDNISOLONE
     Dosage: 7 DF, QD
     Route: 048

REACTIONS (13)
  - Platelet count decreased [Unknown]
  - Contusion [Unknown]
  - Mouth haemorrhage [Unknown]
  - Petechiae [Not Recovered/Not Resolved]
  - Urinary tract infection [Unknown]
  - Productive cough [Unknown]
  - Influenza [Unknown]
  - Drug chemical incompatibility [Unknown]
  - Platelet count increased [Unknown]
  - Dizziness [Unknown]
  - Cough [Unknown]
  - Malaise [Unknown]
  - Product availability issue [Unknown]

NARRATIVE: CASE EVENT DATE: 20200901
